FAERS Safety Report 9128384 (Version 1)
Quarter: 2013Q1

REPORT INFORMATION
  Report Type: Spontaneous
  Country: US (occurrence: US)
  Receive Date: 20130228
  Receipt Date: 20130228
  Transmission Date: 20140127
  Serious: No
  Sender: FDA-Public Use
  Company Number: US-ABBOTT-12P-163-1022893-00

PATIENT
  Age: 70 Year
  Sex: Male
  Weight: 93.98 kg

DRUGS (6)
  1. ANDROGEL [Suspect]
     Indication: BLOOD TESTOSTERONE DECREASED
     Dosage: 2 PUMPS PER DAY
     Dates: start: 201210
  2. ANDROGEL [Suspect]
     Indication: BLOOD TESTOSTERONE DECREASED
     Dosage: 4 PUMPS PER DAY
     Dates: start: 2010, end: 201210
  3. CARVEDILOL [Concomitant]
     Indication: BLOOD PRESSURE
  4. SIMVASTATIN [Concomitant]
     Indication: BLOOD CHOLESTEROL
  5. JANUMET [Concomitant]
     Indication: DIABETES MELLITUS
  6. TRICOR [Concomitant]
     Indication: BLOOD CHOLESTEROL

REACTIONS (3)
  - Pain in extremity [Not Recovered/Not Resolved]
  - Bone pain [Not Recovered/Not Resolved]
  - Arthritis [Unknown]
